FAERS Safety Report 8570817-0 (Version None)
Quarter: 2012Q3

REPORT INFORMATION
  Report Type: 
  Country: None (occurrence: None)
  Receive Date: 20120806
  Receipt Date: 20120801
  Transmission Date: 20120928
  Serious: Yes (Other)
  Sender: FDA-Public Use
  Company Number: US-AMGEN-USASP2012048218

PATIENT
  Age: 78 Year
  Sex: Female

DRUGS (5)
  1. PRAVACHOL [Concomitant]
  2. TOPROL-XL [Concomitant]
  3. PROLIA [Suspect]
     Indication: OSTEOPOROSIS POSTMENOPAUSAL
     Dosage: 60 MG, Q6MO
     Dates: start: 20120201
  4. VITAMIN D [Concomitant]
     Dosage: 50000 IU, Q2WK
  5. TUMS                               /00193601/ [Concomitant]
     Dosage: UNK UNK, QD

REACTIONS (2)
  - HYPOACUSIS [None]
  - BLOOD CALCIUM DECREASED [None]
